FAERS Safety Report 11805816 (Version 1)
Quarter: 2015Q4

REPORT INFORMATION
  Report Type: Spontaneous
  Country: NG (occurrence: NG)
  Receive Date: 20151207
  Receipt Date: 20151207
  Transmission Date: 20160305
  Serious: Yes (Other)
  Sender: FDA-Public Use
  Company Number: NG-PAR PHARMACEUTICAL COMPANIES-2015SCPR014519

PATIENT

DRUGS (1)
  1. PITOCIN [Suspect]
     Active Substance: OXYTOCIN
     Indication: LABOUR INDUCTION
     Dosage: UNK UNK, UNKNOWN
     Route: 030

REACTIONS (1)
  - Perineal injury [Recovered/Resolved]
